FAERS Safety Report 6086535-7 (Version None)
Quarter: 2009Q1

REPORT INFORMATION
  Report Type: 
  Country: None (occurrence: None)
  Receive Date: 20090218
  Receipt Date: 20090211
  Transmission Date: 20090719
  Serious: Yes (Disabling)
  Sender: FDA-Public Use
  Company Number: APP200800118

PATIENT
  Age: 16 Year
  Sex: Female

DRUGS (4)
  1. BUPIVACAINE HYDROCHLORIDE AND EPINEPHRINE [Suspect]
     Indication: MUSCULOSKELETAL PAIN
     Dosage: 30 ML, CONTINUOUS VIA PAIN PUMP, INJECTION
     Dates: start: 20060201
  2. POLOCAINE [Suspect]
     Indication: MUSCULOSKELETAL PAIN
     Dates: start: 20060201
  3. BUPIVACAINE HYDROCHLORIDE AND EPINEPHRINE [Suspect]
     Indication: MUSCULOSKELETAL PAIN
     Dosage: CONTINUOUS VIA PAIN PUMP
     Dates: start: 20070911
  4. ON-Q PAIN PUMP [Suspect]
     Indication: MUSCULOSKELETAL PAIN
     Dates: start: 20060220

REACTIONS (10)
  - AXILLARY NERVE INJURY [None]
  - CERVICOBRACHIAL SYNDROME [None]
  - CHONDROLYSIS [None]
  - LOOSE BODY IN JOINT [None]
  - MUSCULOSKELETAL PAIN [None]
  - NEUROPATHY PERIPHERAL [None]
  - OSTEOARTHRITIS [None]
  - PROCEDURAL PAIN [None]
  - RADICULITIS CERVICAL [None]
  - SPINAL OSTEOARTHRITIS [None]
